FAERS Safety Report 9470695 (Version 1)
Quarter: 2013Q3

REPORT INFORMATION
  Report Type: Spontaneous
  Country: CA (occurrence: CA)
  Receive Date: 20130822
  Receipt Date: 20130822
  Transmission Date: 20140515
  Serious: Yes (Other)
  Sender: FDA-Public Use
  Company Number: CA-TEVA-427617USA

PATIENT
  Age: 55 Year
  Sex: Female

DRUGS (6)
  1. CEFTRIAXONE [Suspect]
     Indication: MENINGITIS BACTERIAL
     Route: 065
  2. VANCOMYCIN [Suspect]
     Indication: MENINGITIS BACTERIAL
     Route: 065
  3. VANCOMYCIN [Suspect]
     Route: 065
  4. CEFTAZIDIME [Suspect]
     Indication: MENINGITIS BACTERIAL
     Route: 065
  5. MEROPENEM [Concomitant]
     Indication: MENINGITIS BACTERIAL
     Route: 065
  6. CIPROFLOXACIN [Concomitant]
     Indication: MENINGITIS BACTERIAL
     Route: 065

REACTIONS (3)
  - Drug reaction with eosinophilia and systemic symptoms [Recovered/Resolved]
  - Disease progression [Recovered/Resolved]
  - Histiocytosis haematophagic [Recovered/Resolved]
